FAERS Safety Report 14520185 (Version 1)
Quarter: 2018Q1

REPORT INFORMATION
  Report Type: Spontaneous
  Country: DK (occurrence: DK)
  Receive Date: 20180212
  Receipt Date: 20180212
  Transmission Date: 20180509
  Serious: Yes (Hospitalization, Disabling)
  Sender: FDA-Public Use
  Company Number: DK-BAYER-2018-021170

PATIENT
  Age: 43 Year
  Sex: Female

DRUGS (1)
  1. MICROGYN [Suspect]
     Active Substance: ETHINYL ESTRADIOL\LEVONORGESTREL
     Indication: CONTRACEPTION
     Dosage: 1 DF, QD
     Route: 048

REACTIONS (12)
  - Exercise tolerance decreased [Not Recovered/Not Resolved]
  - Mental disorder [Unknown]
  - Peripheral swelling [Not Recovered/Not Resolved]
  - Skin irritation [None]
  - Pain in extremity [Unknown]
  - Loss of personal independence in daily activities [Not Recovered/Not Resolved]
  - Weight increased [Not Recovered/Not Resolved]
  - Fibrin D dimer increased [Unknown]
  - Post thrombotic syndrome [Not Recovered/Not Resolved]
  - Pain in extremity [None]
  - Deep vein thrombosis [None]
  - Limb discomfort [Not Recovered/Not Resolved]

NARRATIVE: CASE EVENT DATE: 20150606
